FAERS Safety Report 8472803-8 (Version None)
Quarter: 2012Q2

REPORT INFORMATION
  Report Type: 
  Country: None (occurrence: None)
  Receive Date: 20120627
  Receipt Date: 20120624
  Transmission Date: 20120825
  Serious: No
  Sender: FDA-Public Use
  Company Number: US-PFIZER INC-2012151737

PATIENT
  Sex: Female

DRUGS (1)
  1. IBUPROFEN (ADVIL) [Suspect]
     Indication: LOWER LIMB FRACTURE
     Dosage: UNK

REACTIONS (2)
  - ABDOMINAL PAIN LOWER [None]
  - ABDOMINAL DISCOMFORT [None]
